FAERS Safety Report 10159829 (Version 1)
Quarter: 2014Q2

REPORT INFORMATION
  Report Type: Spontaneous
  Country: US (occurrence: US)
  Receive Date: 20140508
  Receipt Date: 20140508
  Transmission Date: 20141212
  Serious: No
  Sender: FDA-Public Use
  Company Number: US-GLAXOSMITHKLINE-A1034141A

PATIENT
  Sex: Female

DRUGS (2)
  1. TYKERB [Suspect]
     Indication: BREAST CANCER
     Dosage: 1250MG PER DAY
     Route: 048
     Dates: start: 20130711, end: 20130920
  2. XELODA [Suspect]
     Indication: BREAST CANCER
     Dates: end: 20130920

REACTIONS (3)
  - Laceration [Unknown]
  - Skin fissures [Unknown]
  - Decreased appetite [Unknown]
